FAERS Safety Report 25962009 (Version 1)
Quarter: 2025Q4

REPORT INFORMATION
  Report Type: Report from Study
  Country: US (occurrence: US)
  Receive Date: 20251027
  Receipt Date: 20251027
  Transmission Date: 20260117
  Serious: Yes (Death, Other)
  Sender: TAKEDA
  Company Number: US-TAKEDA-2025TUS074889

PATIENT
  Age: 91 Year
  Sex: Male

DRUGS (20)
  1. FRUQUINTINIB [Suspect]
     Active Substance: FRUQUINTINIB
     Indication: Prostate cancer
     Dosage: 5 MILLIGRAM
  2. ACETAMINOPHEN [Concomitant]
     Active Substance: ACETAMINOPHEN
     Dosage: UNK
  3. CHOLECALCIFEROL [Concomitant]
     Active Substance: CHOLECALCIFEROL
     Dosage: UNK
  4. CLONIDINE HYDROCHLORIDE [Concomitant]
     Active Substance: CLONIDINE HYDROCHLORIDE
     Dosage: 0.1 MILLIGRAM
  5. FERROUS GLUCONATE [Concomitant]
     Active Substance: FERROUS GLUCONATE
     Dosage: UNK
  6. FINASTERIDE [Concomitant]
     Active Substance: FINASTERIDE
     Dosage: 5 MILLIGRAM
  7. FRUQUINTINIB [Concomitant]
     Active Substance: FRUQUINTINIB
     Dosage: UNK
  8. GABAPENTIN [Concomitant]
     Active Substance: GABAPENTIN
     Dosage: 300 MILLIGRAM
  9. LEVOTHYROXINE SODIUM [Concomitant]
     Active Substance: LEVOTHYROXINE SODIUM
     Dosage: UNK
  10. LINZESS [Concomitant]
     Active Substance: LINACLOTIDE
     Dosage: 145 MICROGRAM
  11. LORAZEPAM [Concomitant]
     Active Substance: LORAZEPAM
     Dosage: 0.5 MILLIGRAM
  12. LOSARTAN POTASSIUM [Concomitant]
     Active Substance: LOSARTAN POTASSIUM
     Dosage: UNK
  13. MEKINIST [Concomitant]
     Active Substance: TRAMETINIB DIMETHYL SULFOXIDE
     Dosage: 2 MILLIGRAM
  14. MELATONIN [Concomitant]
     Active Substance: MELATONIN
     Dosage: 10 MILLIGRAM
  15. METOPROLOL TARTRATE [Concomitant]
     Active Substance: METOPROLOL TARTRATE
     Dosage: UNK
  16. MIRTAZAPINE [Concomitant]
     Active Substance: MIRTAZAPINE
     Dosage: 15 MILLIGRAM
  17. MINERALS\VITAMINS [Concomitant]
     Active Substance: MINERALS\VITAMINS
     Dosage: UNK
  18. OMEPRAZOLE [Concomitant]
     Active Substance: OMEPRAZOLE
     Dosage: UNK
  19. POLYETHYLENE GLYCOL 3350 [Concomitant]
     Active Substance: POLYETHYLENE GLYCOL 3350
     Dosage: UNK
  20. TAMSULOSIN HYDROCHLORIDE [Concomitant]
     Active Substance: TAMSULOSIN HYDROCHLORIDE
     Dosage: 0.4 MILLIGRAM

REACTIONS (2)
  - Death [Fatal]
  - Oropharyngeal discomfort [Recovering/Resolving]
